FAERS Safety Report 15799058 (Version 2)
Quarter: 2021Q2

REPORT INFORMATION
  Report Type: Spontaneous
  Country: US (occurrence: US)
  Receive Date: 20190108
  Receipt Date: 20210514
  Transmission Date: 20210716
  Serious: No
  Sender: FDA-Public Use
  Company Number: US-JAZZ-2013-US-002671

PATIENT
  Sex: Male

DRUGS (3)
  1. XYREM [Suspect]
     Active Substance: SODIUM OXYBATE
     Indication: HYPERSOMNIA
     Dosage: 2.25 GRAM, BID
     Route: 048
     Dates: start: 2013, end: 2013
  2. XYREM [Suspect]
     Active Substance: SODIUM OXYBATE
     Indication: CATAPLEXY
     Dosage: 3 GRAM, BID
     Route: 048
     Dates: start: 2013
  3. XYREM [Suspect]
     Active Substance: SODIUM OXYBATE
     Indication: NARCOLEPSY
     Dosage: 1.5 GRAM, BID
     Route: 048
     Dates: start: 201309, end: 2013

REACTIONS (4)
  - Dizziness [Recovering/Resolving]
  - Urine output increased [Not Recovered/Not Resolved]
  - Constipation [Not Recovered/Not Resolved]
  - Hyperhidrosis [Not Recovered/Not Resolved]

NARRATIVE: CASE EVENT DATE: 2013
